FAERS Safety Report 23999714 (Version 1)
Quarter: 2024Q2

REPORT INFORMATION
  Report Type: Spontaneous
  Country: US (occurrence: None)
  Receive Date: 20240620
  Receipt Date: 20240620
  Transmission Date: 20240715
  Serious: No
  Sender: FDA-Public Use
  Company Number: None

PATIENT
  Age: 46 Year
  Sex: Male
  Weight: 107.1 kg

DRUGS (1)
  1. TEMOZOLOMIDE [Suspect]
     Active Substance: TEMOZOLOMIDE
     Indication: Brain neoplasm malignant
     Dosage: 180 MG DAILY ORAL ?
     Route: 048
     Dates: start: 20240514

REACTIONS (2)
  - Rash [None]
  - Asthenia [None]

NARRATIVE: CASE EVENT DATE: 20240620
